FAERS Safety Report 8872060 (Version 1)
Quarter: 2012Q4

REPORT INFORMATION
  Report Type: 
  Country: US (occurrence: US)
  Receive Date: 20121023
  Receipt Date: 20121023
  Transmission Date: 20130627
  Serious: Yes (Hospitalization)
  Sender: FDA-Public Use
  Company Number: US-ASTELLAS-2012US004726

PATIENT
  Age: 71 Year
  Sex: Female

DRUGS (2)
  1. PROGRAF [Suspect]
     Indication: LIVER TRANSPLANT
     Dosage: 3 mg, bid
     Route: 048
     Dates: start: 20030908
  2. PROGRAF [Suspect]
     Dosage: 1 mg, UID/QD
     Route: 048

REACTIONS (1)
  - Atrial fibrillation [Unknown]
